FAERS Safety Report 6316034-6 (Version None)
Quarter: 2009Q3

REPORT INFORMATION
  Report Type: 
  Country: None (occurrence: None)
  Receive Date: 20090820
  Receipt Date: 20090812
  Transmission Date: 20100115
  Serious: Yes (Other)
  Sender: FDA-Public Use
  Company Number: US-JNJFOC-20090805143

PATIENT
  Sex: Male

DRUGS (1)
  1. RISPERDAL CONSTA [Suspect]
     Indication: SCHIZOPHRENIA, PARANOID TYPE
     Route: 030

REACTIONS (5)
  - DIABETES MELLITUS [None]
  - EPISTAXIS [None]
  - SKIN FISSURES [None]
  - URINARY TRACT INFECTION [None]
  - WEIGHT INCREASED [None]
